FAERS Safety Report 15990338 (Version 5)
Quarter: 2019Q2

REPORT INFORMATION
  Report Type: Spontaneous
  Country: JO (occurrence: JO)
  Receive Date: 20190221
  Receipt Date: 20190415
  Transmission Date: 20190711
  Serious: Yes (Life-Threatening, Other)
  Sender: FDA-Public Use
  Company Number: PHHY2019JO036715

PATIENT
  Age: 36 Year
  Sex: Female

DRUGS (8)
  1. MYCOPHENOLATE MOFETIL. [Suspect]
     Active Substance: MYCOPHENOLATE MOFETIL
     Indication: GLOMERULONEPHRITIS PROLIFERATIVE
     Dosage: 1000 MG, BID
     Route: 065
  2. METHYLPREDNISOLONE. [Suspect]
     Active Substance: METHYLPREDNISOLONE
     Indication: GLOMERULONEPHRITIS PROLIFERATIVE
     Dosage: 1000 MG, UNK
     Route: 065
     Dates: start: 20131226, end: 20131229
  3. MYCOPHENOLIC ACID. [Suspect]
     Active Substance: MYCOPHENOLIC ACID
     Indication: GLOMERULONEPHRITIS PROLIFERATIVE
     Dosage: 360 MG
     Route: 065
     Dates: start: 20140113, end: 20140208
  4. CYCLOPHOSPHAMIDE. [Suspect]
     Active Substance: CYCLOPHOSPHAMIDE
     Dosage: 500 MG, Q2W
     Route: 042
     Dates: start: 201308, end: 20131212
  5. CYCLOPHOSPHAMIDE. [Suspect]
     Active Substance: CYCLOPHOSPHAMIDE
     Dosage: 500 MG, UNK
     Route: 065
     Dates: start: 20131226, end: 20131229
  6. CYCLOPHOSPHAMIDE. [Suspect]
     Active Substance: CYCLOPHOSPHAMIDE
     Indication: GLOMERULONEPHRITIS PROLIFERATIVE
     Dosage: 1000 MG, UNK
     Route: 042
     Dates: start: 201306, end: 201308
  7. PREDNISONE. [Suspect]
     Active Substance: PREDNISONE
     Indication: LUPUS NEPHRITIS
     Dosage: UNK
     Route: 065
  8. RITUXIMAB. [Suspect]
     Active Substance: RITUXIMAB
     Indication: GLOMERULONEPHRITIS
     Dosage: 1000 UNK, UNK
     Route: 065
     Dates: start: 20131226, end: 20131229

REACTIONS (12)
  - Generalised tonic-clonic seizure [Recovered/Resolved]
  - Papilloedema [Unknown]
  - Neutropenia [Unknown]
  - Diarrhoea [Recovered/Resolved]
  - Posterior reversible encephalopathy syndrome [Recovered/Resolved]
  - Nausea [Unknown]
  - Product use in unapproved indication [Unknown]
  - Blindness [Unknown]
  - Headache [Recovered/Resolved]
  - Hypertension [Unknown]
  - Mental disorder [Unknown]
  - Retinal haemorrhage [Unknown]

NARRATIVE: CASE EVENT DATE: 2013
